FAERS Safety Report 9572326 (Version 1)
Quarter: 2013Q4

REPORT INFORMATION
  Report Type: Spontaneous
  Country: IE (occurrence: IE)
  Receive Date: 20131001
  Receipt Date: 20131001
  Transmission Date: 20140711
  Serious: Yes (Life-Threatening, Hospitalization)
  Sender: FDA-Public Use
  Company Number: PHHY2013IE109097

PATIENT
  Age: 76 Year
  Sex: Female

DRUGS (5)
  1. FEMARA [Suspect]
     Indication: BREAST CANCER
     Dosage: 2.5 MG, UNK
     Route: 048
  2. CALCICHEW D3 FORTE [Concomitant]
     Dosage: 1 DF, BID
     Route: 048
  3. ASPIRIN E.C [Concomitant]
     Dosage: 150 MG, QD
     Route: 048
  4. SITAGLIPTIN [Concomitant]
     Dosage: 35 MG, UNK
     Route: 048
     Dates: start: 20130703
  5. METFORMIN [Concomitant]
     Dosage: 500 MG, QD
     Route: 048

REACTIONS (5)
  - Melaena [Recovering/Resolving]
  - Gastrointestinal haemorrhage [Recovering/Resolving]
  - Haemoglobin decreased [Recovering/Resolving]
  - Rectal haemorrhage [Recovering/Resolving]
  - Pulmonary embolism [Recovering/Resolving]
